FAERS Safety Report 8435433-X (Version None)
Quarter: 2012Q2

REPORT INFORMATION
  Report Type: 
  Country: None (occurrence: None)
  Receive Date: 20120614
  Receipt Date: 20120606
  Transmission Date: 20120825
  Serious: No
  Sender: FDA-Public Use
  Company Number: US-ASTRAZENECA-2011SE74534

PATIENT
  Age: 49 Year
  Sex: Female
  Weight: 44.5 kg

DRUGS (12)
  1. SEROQUEL [Suspect]
     Indication: BIPOLAR DISORDER
     Route: 048
     Dates: start: 20111001
  2. ACTIVELLA [Concomitant]
     Indication: HORMONE REPLACEMENT THERAPY
  3. LORTAB [Concomitant]
  4. TRAMADOL HCL [Concomitant]
  5. KLOR-CON [Concomitant]
     Indication: ELECTROLYTE SUBSTITUTION THERAPY
  6. CYMBALTA [Concomitant]
  7. SIMVASTATIN [Concomitant]
     Indication: BLOOD CHOLESTEROL
  8. TENORETIC 100 [Suspect]
     Dosage: 25, DAILY
     Route: 048
  9. OXYCONTIN [Concomitant]
  10. SOMA [Concomitant]
  11. TENORETIC 100 [Suspect]
     Indication: BLOOD PRESSURE INCREASED
     Dosage: 100, DAILY
     Route: 048
  12. AMDIAN [Concomitant]
     Indication: SLEEP DISORDER

REACTIONS (5)
  - NEUROPATHY PERIPHERAL [None]
  - PAIN [None]
  - INSOMNIA [None]
  - BACK PAIN [None]
  - DRUG DOSE OMISSION [None]
